FAERS Safety Report 8619602 (Version 2)
Quarter: 2013Q2

REPORT INFORMATION
  Report Type: Spontaneous
  Country: US (occurrence: US)
  Receive Date: 20120618
  Receipt Date: 20130627
  Transmission Date: 20140414
  Serious: Yes (Hospitalization, Other)
  Sender: FDA-Public Use
  Company Number: US-ROCHE-1014586

PATIENT
  Age: 18 Year
  Sex: Female
  Weight: 52.66 kg

DRUGS (2)
  1. ACCUTANE [Suspect]
     Indication: ACNE
     Route: 048
     Dates: start: 19980723, end: 19990112
  2. ACCUTANE [Suspect]
     Route: 065
     Dates: start: 20000322, end: 20000907

REACTIONS (7)
  - Crohn^s disease [Unknown]
  - Iron deficiency anaemia [Unknown]
  - Leukocytosis [Unknown]
  - Inflammatory bowel disease [Unknown]
  - Emotional distress [Unknown]
  - Anal fissure [Unknown]
  - Irritable bowel syndrome [Unknown]
